FAERS Safety Report 4376242-0 (Version None)
Quarter: 2004Q2

REPORT INFORMATION
  Report Type: 
  Country: None (occurrence: None)
  Receive Date: 20040611
  Receipt Date: 20031008
  Transmission Date: 20050107
  Serious: Yes (Hospitalization)
  Sender: FDA-Public Use
  Company Number: FR-MERCK-0310FRA00039

PATIENT
  Age: 64 Year
  Sex: Male

DRUGS (3)
  1. ASPIRIN [Concomitant]
     Route: 048
  2. ATENOLOL [Concomitant]
     Indication: HYPERTENSION
     Route: 048
  3. ZOCOR [Suspect]
     Indication: HYPERCHOLESTEROLAEMIA
     Route: 048
     Dates: start: 20030901, end: 20031001

REACTIONS (1)
  - HEPATIC NEOPLASM [None]
